FAERS Safety Report 8513035-4 (Version None)
Quarter: 2012Q3

REPORT INFORMATION
  Report Type: 
  Country: None (occurrence: None)
  Receive Date: 20120716
  Receipt Date: 20120513
  Transmission Date: 20120928
  Serious: Yes (Hospitalization)
  Sender: FDA-Public Use
  Company Number: NL-BAXTER-2012BAX005502

PATIENT
  Age: 68 Year
  Sex: Male

DRUGS (3)
  1. PHYSIOSOL IN PLASTIC CONTAINER [Suspect]
     Route: 033
     Dates: start: 20090609
  2. NUTRINEAL [Suspect]
     Route: 033
     Dates: start: 20090609
  3. EXTRANEAL [Suspect]
     Route: 033
     Dates: start: 20090609

REACTIONS (1)
  - SEPSIS [None]
